FAERS Safety Report 21985616 (Version 2)
Quarter: 2025Q1

REPORT INFORMATION
  Report Type: Spontaneous
  Country: US (occurrence: US)
  Receive Date: 20230213
  Receipt Date: 20250110
  Transmission Date: 20250408
  Serious: Yes (Other)
  Sender: SANOFI AVENTIS
  Company Number: US-SANOFI-01485410

PATIENT
  Age: 73 Year
  Sex: Male

DRUGS (9)
  1. DUPIXENT [Suspect]
     Active Substance: DUPILUMAB
     Indication: Nasal polyps
     Dosage: 300 MG, QOW
     Route: 065
  2. DUPIXENT [Suspect]
     Active Substance: DUPILUMAB
     Indication: Asthma
  3. MODERNA COVID-19 VACCINE [Suspect]
     Active Substance: ELASOMERAN
     Indication: Immunisation
  4. XARELTO [Concomitant]
     Active Substance: RIVAROXABAN
  5. XARELTO [Concomitant]
     Active Substance: RIVAROXABAN
     Dosage: 2.5 MG, QD
  6. METOPROLOL [Concomitant]
     Active Substance: METOPROLOL
  7. ASPIRIN [Concomitant]
     Active Substance: ASPIRIN
     Dosage: 81 MG, QD
  8. AVODART [Concomitant]
     Active Substance: DUTASTERIDE
     Indication: Prostatic disorder
  9. LISINOPRIL [Concomitant]
     Active Substance: LISINOPRIL

REACTIONS (11)
  - Myocardial infarction [Unknown]
  - Pulmonary embolism [Unknown]
  - Dyspnoea [Unknown]
  - Condition aggravated [Unknown]
  - COVID-19 [Unknown]
  - Blood pressure increased [Recovering/Resolving]
  - Contusion [Unknown]
  - Platelet count decreased [Unknown]
  - Headache [Unknown]
  - Sinusitis [Unknown]
  - Eosinophil count increased [Unknown]

NARRATIVE: CASE EVENT DATE: 20160101
